FAERS Safety Report 7346140-9 (Version None)
Quarter: 2011Q1

REPORT INFORMATION
  Report Type: 
  Country: None (occurrence: None)
  Receive Date: 20110311
  Receipt Date: 20100913
  Transmission Date: 20110831
  Serious: Yes (Hospitalization, Other)
  Sender: FDA-Public Use
  Company Number: US-BAYER-201011599NA

PATIENT
  Sex: Female
  Weight: 72.109 kg

DRUGS (10)
  1. VITAMIN D [Concomitant]
     Indication: VITAMIN D DEFICIENCY
     Dosage: UNK
     Route: 048
     Dates: start: 20090101
  2. VIACTIV [CALCIUM] [Concomitant]
     Indication: MINERAL SUPPLEMENTATION
     Dosage: UNK
     Route: 048
     Dates: start: 20081201
  3. NSAID'S [Concomitant]
  4. MULTI-VITAMIN [Concomitant]
     Dosage: UNK
     Route: 048
     Dates: start: 20081201
  5. CLARITIN-D [Concomitant]
     Indication: MULTIPLE ALLERGIES
     Dosage: UNK
     Route: 048
     Dates: start: 20061201
  6. MUCINEX [Concomitant]
     Dosage: UNK
     Route: 048
     Dates: start: 20081201
  7. YAZ [Suspect]
     Indication: CONTRACEPTION
     Dosage: UNK
     Dates: start: 20071201, end: 20081201
  8. THYROID TAB [Concomitant]
     Indication: HYPOTHYROIDISM
     Dosage: 60 MCG/24HR, QD
     Route: 048
     Dates: start: 20081021, end: 20091130
  9. YASMIN [Suspect]
  10. YAZ [Suspect]
     Indication: PREMENSTRUAL SYNDROME

REACTIONS (3)
  - DEEP VEIN THROMBOSIS [None]
  - OEDEMA PERIPHERAL [None]
  - PAIN IN EXTREMITY [None]
